FAERS Safety Report 16494485 (Version 1)
Quarter: 2019Q2

REPORT INFORMATION
  Report Type: Spontaneous
  Country: US (occurrence: US)
  Receive Date: 20190628
  Receipt Date: 20190628
  Transmission Date: 20190711
  Serious: No
  Sender: FDA-Public Use
  Company Number: US-GALDERMA-US19019424

PATIENT
  Age: 16 Year
  Sex: Male

DRUGS (4)
  1. PROACTIV DETOX HYDROGEL FACE [Concomitant]
     Route: 061
     Dates: start: 201809, end: 201812
  2. PROACTIV MD ADAPALENE ACNE TREATMENT [Suspect]
     Active Substance: ADAPALENE
     Indication: PRODUCT USED FOR UNKNOWN INDICATION
     Dosage: 0.1%
     Route: 061
     Dates: start: 201809, end: 201812
  3. PROACTIV GREEN TEA MOISTURIZER [Concomitant]
     Active Substance: COSMETICS
     Route: 061
     Dates: start: 201809, end: 201812
  4. PROACTIV MD DEEP CLEANSING FACE WASH [Concomitant]
     Active Substance: COSMETICS
     Route: 061
     Dates: start: 201809, end: 201812

REACTIONS (2)
  - Skin irritation [Unknown]
  - Drug ineffective [Unknown]
